FAERS Safety Report 10664795 (Version 16)
Quarter: 2016Q2

REPORT INFORMATION
  Report Type: Spontaneous
  Country: CA (occurrence: CA)
  Receive Date: 20141219
  Receipt Date: 20160518
  Transmission Date: 20160815
  Serious: Yes (Hospitalization, Other)
  Sender: FDA-Public Use
  Company Number: CA-GSKJP-KK201314139GSK1550188002

PATIENT
  Age: 52 Year
  Sex: Female
  Weight: 69 kg

DRUGS (10)
  1. TYLENOL [Concomitant]
     Active Substance: ACETAMINOPHEN
     Indication: PRODUCT USED FOR UNKNOWN INDICATION
     Dosage: UNK
  2. GRAVOL [Concomitant]
     Active Substance: DIMENHYDRINATE
     Indication: NAUSEA
     Dosage: 50 MG, UNK
     Route: 048
  3. LYRICA [Concomitant]
     Active Substance: PREGABALIN
     Indication: PRODUCT USED FOR UNKNOWN INDICATION
     Dosage: UNK
  4. TOPIRAMATE. [Concomitant]
     Active Substance: TOPIRAMATE
     Indication: PRODUCT USED FOR UNKNOWN INDICATION
     Dosage: UNK
  5. BENLYSTA [Suspect]
     Active Substance: BELIMUMAB
     Dosage: UNK
     Route: 042
     Dates: start: 20130318
  6. BENLYSTA [Suspect]
     Active Substance: BELIMUMAB
     Dosage: 640 MG, UNK
  7. NEXIUM [Concomitant]
     Active Substance: ESOMEPRAZOLE MAGNESIUM
     Indication: PRODUCT USED FOR UNKNOWN INDICATION
     Dosage: UNK
  8. BENLYSTA [Suspect]
     Active Substance: BELIMUMAB
     Indication: SYSTEMIC LUPUS ERYTHEMATOSUS
     Dosage: 640 MG, UNK
     Route: 042
     Dates: start: 20130318
  9. BENLYSTA [Suspect]
     Active Substance: BELIMUMAB
     Dosage: 640 MG, UNK
     Route: 042
     Dates: end: 20151214
  10. BENLYSTA [Suspect]
     Active Substance: BELIMUMAB
     Dosage: 640 MG, UNK

REACTIONS (47)
  - Blood pressure increased [Recovered/Resolved]
  - Hypoaesthesia [Recovered/Resolved]
  - Malaise [Not Recovered/Not Resolved]
  - Gastroenteritis viral [Recovered/Resolved]
  - Rash [Unknown]
  - Arthritis [Unknown]
  - Upper respiratory tract infection [Not Recovered/Not Resolved]
  - Fatigue [Not Recovered/Not Resolved]
  - Discomfort [Unknown]
  - Hepatic enzyme increased [Unknown]
  - Insomnia [Unknown]
  - Arterial stenosis [Not Recovered/Not Resolved]
  - Sinus congestion [Unknown]
  - Peripheral swelling [Unknown]
  - Erythema [Unknown]
  - Arthralgia [Unknown]
  - Nasopharyngitis [Unknown]
  - Pyrexia [Unknown]
  - Paraesthesia [Recovered/Resolved]
  - Herpes zoster [Not Recovered/Not Resolved]
  - Blister [Unknown]
  - Bronchitis [Unknown]
  - Headache [Recovered/Resolved]
  - Ear infection [Unknown]
  - Rash erythematous [Unknown]
  - Carpal tunnel decompression [Unknown]
  - Nausea [Recovered/Resolved]
  - Oropharyngeal pain [Not Recovered/Not Resolved]
  - Pain [Unknown]
  - Sinusitis [Not Recovered/Not Resolved]
  - Pharyngitis [Unknown]
  - Disability [Unknown]
  - Pneumonia [Not Recovered/Not Resolved]
  - Abdominal discomfort [Recovered/Resolved]
  - Balance disorder [Unknown]
  - Diarrhoea [Not Recovered/Not Resolved]
  - Contusion [Recovered/Resolved]
  - Cough [Unknown]
  - Drug ineffective [Not Recovered/Not Resolved]
  - Influenza [Unknown]
  - Pain in extremity [Unknown]
  - Fall [Recovered/Resolved]
  - Muscular weakness [Recovered/Resolved]
  - Gait disturbance [Unknown]
  - Immune system disorder [Unknown]
  - Electrocardiogram P wave abnormal [Not Recovered/Not Resolved]
  - Nerve compression [Unknown]

NARRATIVE: CASE EVENT DATE: 20130318
